FAERS Safety Report 5996584-2 (Version None)
Quarter: 2008Q4

REPORT INFORMATION
  Report Type: 
  Country: None (occurrence: None)
  Receive Date: 20081212
  Receipt Date: 20081020
  Transmission Date: 20090506
  Serious: No
  Sender: FDA-Public Use
  Company Number: US-ABBOTT-08P-163-0482931-00

PATIENT
  Sex: Female
  Weight: 76.726 kg

DRUGS (27)
  1. HUMIRA [Suspect]
     Indication: RHEUMATOID ARTHRITIS
     Route: 058
     Dates: start: 20080601
  2. HUMIRA [Suspect]
     Route: 058
     Dates: start: 20081002
  3. DAVOCET [Concomitant]
     Indication: ANTIBIOTIC PROPHYLAXIS
  4. VICODIN [Concomitant]
     Indication: POSTOPERATIVE ANALGESIA
     Dosage: 1-2 TABLETS EVERY 6 HOURS AS NEEDED
     Route: 048
  5. LEVOTHYROXINE SODIUM [Concomitant]
     Indication: HYPOTHYROIDISM
  6. OMEPRAZOLE MAGNESIUM [Concomitant]
     Indication: GASTROOESOPHAGEAL REFLUX DISEASE
  7. PREDNISONE TAB [Concomitant]
     Indication: RHEUMATOID ARTHRITIS
  8. CLOPIDOGREL [Concomitant]
     Indication: CARDIAC DISORDER
  9. CARVEDILOL [Concomitant]
     Indication: CARDIAC DISORDER
  10. COLESEVELAM HYDROCHLORIDE [Concomitant]
     Indication: DRUG USE FOR UNKNOWN INDICATION
  11. RANOLAZINE [Concomitant]
     Indication: CARDIAC DISORDER
  12. LOVASA [Concomitant]
     Indication: BLOOD CHOLESTEROL
  13. DOCUSATE SODIUM [Concomitant]
     Indication: CONSTIPATION PROPHYLAXIS
  14. PANCREATIN [Concomitant]
     Indication: COLITIS
  15. ACETYLSALICYLIC ACID SRT [Concomitant]
     Indication: CARDIAC DISORDER
  16. ISOSORBIDE MONONITRATE [Concomitant]
     Indication: DRUG USE FOR UNKNOWN INDICATION
  17. DIOVAN HCT [Concomitant]
     Indication: DRUG USE FOR UNKNOWN INDICATION
  18. ZOLPIDEM TARTRATE [Concomitant]
     Indication: INSOMNIA
  19. FENTANYL-100 [Concomitant]
     Indication: PAIN
     Route: 062
  20. NITROGLYCERIN [Concomitant]
     Indication: CHEST PAIN
  21. FERROUS SULFATE TAB [Concomitant]
     Indication: ANAEMIA
  22. OMEGA-3 TRIGLYCERIDES [Concomitant]
     Indication: PAIN
  23. TOCOPHERYL ACETATE [Concomitant]
     Indication: DRUG USE FOR UNKNOWN INDICATION
  24. ASCORBIC ACID [Concomitant]
     Indication: DRUG USE FOR UNKNOWN INDICATION
  25. BIOTIN FORTE [Concomitant]
     Indication: DRUG USE FOR UNKNOWN INDICATION
  26. CALCIUM-SANDOZ [Concomitant]
     Indication: DRUG USE FOR UNKNOWN INDICATION
  27. DAILY VITAMIN [Concomitant]
     Indication: DRUG USE FOR UNKNOWN INDICATION

REACTIONS (1)
  - CATHETER SITE INFECTION [None]
